FAERS Safety Report 6411104-6 (Version None)
Quarter: 2009Q4

REPORT INFORMATION
  Report Type: 
  Country: None (occurrence: None)
  Receive Date: 20091014
  Receipt Date: 20091001
  Transmission Date: 20100525
  Serious: Yes (Death)
  Sender: FDA-Public Use
  Company Number: THYM-1001236

PATIENT
  Age: 18 Year
  Sex: Female
  Weight: 50 kg

DRUGS (1)
  1. THYMOGLOBULIN [Suspect]
     Indication: STEM CELL TRANSPLANT
     Dosage: 1 MG/KG, QD, INTRAVENOUS
     Route: 042
     Dates: start: 20090305, end: 20090308

REACTIONS (1)
  - DISEASE PROGRESSION [None]
